FAERS Safety Report 8288063-7 (Version None)
Quarter: 2012Q2

REPORT INFORMATION
  Report Type: 
  Country: None (occurrence: None)
  Receive Date: 20120416
  Receipt Date: 20120406
  Transmission Date: 20120825
  Serious: Yes (Life-Threatening)
  Sender: FDA-Public Use
  Company Number: AT-COVIDIEN/TYCO HEALTHCARE/MALLINCKRODT-T201201421

PATIENT
  Sex: Male

DRUGS (1)
  1. OPTIRAY 160 [Suspect]
     Indication: UROGRAM
     Dosage: 100 ML, SINGLE
     Route: 042
     Dates: start: 20120402, end: 20120402

REACTIONS (2)
  - CARDIAC ARREST [None]
  - RESPIRATORY ARREST [None]
